FAERS Safety Report 7157409-5 (Version None)
Quarter: 2010Q4

REPORT INFORMATION
  Report Type: 
  Country: None (occurrence: None)
  Receive Date: 20101214
  Receipt Date: 20101201
  Transmission Date: 20110411
  Serious: Yes (Hospitalization)
  Sender: FDA-Public Use
  Company Number: A0797795A

PATIENT
  Age: 49 Year
  Sex: Male
  Weight: 99.1 kg

DRUGS (6)
  1. AVANDIA [Suspect]
     Indication: DIABETES MELLITUS
     Dosage: 8MG PER DAY
     Route: 048
     Dates: start: 20001121, end: 20070601
  2. INSULIN [Concomitant]
  3. ACCUPRIL [Concomitant]
  4. AMBIEN [Concomitant]
  5. PAXIL CR [Concomitant]
  6. EFFEXOR [Concomitant]

REACTIONS (20)
  - ANXIETY [None]
  - AORTIC ARTERIOSCLEROSIS [None]
  - AORTIC VALVE SCLEROSIS [None]
  - BUNDLE BRANCH BLOCK RIGHT [None]
  - CARDIAC ARREST [None]
  - CHRONIC OBSTRUCTIVE PULMONARY DISEASE [None]
  - DEPRESSION [None]
  - DEVICE RELATED SEPSIS [None]
  - DIABETIC KETOACIDOSIS [None]
  - ESCHERICHIA TEST POSITIVE [None]
  - HYPERKALAEMIA [None]
  - LEFT VENTRICULAR HYPERTROPHY [None]
  - MITRAL VALVE INCOMPETENCE [None]
  - MYOCARDIAL INFARCTION [None]
  - MYOCARDIAL ISCHAEMIA [None]
  - PNEUMONIA [None]
  - PULMONARY HYPERTENSION [None]
  - RESPIRATORY FAILURE [None]
  - STAPHYLOCOCCUS TEST POSITIVE [None]
  - TRICUSPID VALVE INCOMPETENCE [None]
